FAERS Safety Report 8031144-3 (Version None)
Quarter: 2012Q1

REPORT INFORMATION
  Report Type: 
  Country: None (occurrence: None)
  Receive Date: 20120109
  Receipt Date: 20111230
  Transmission Date: 20120608
  Serious: Yes (Hospitalization)
  Sender: FDA-Public Use
  Company Number: US-ACTELION-A-US2010-35378

PATIENT

DRUGS (4)
  1. REVATIO [Concomitant]
  2. COUMADIN [Concomitant]
  3. TRACLEER [Suspect]
     Indication: PULMONARY ARTERIAL HYPERTENSION
     Dosage: UNK
     Route: 048
     Dates: start: 20100201
  4. CALCIUM CHANNEL BLOCKERS [Concomitant]
     Dosage: UNK

REACTIONS (11)
  - ASTHENIA [None]
  - DIZZINESS [None]
  - FLUID OVERLOAD [None]
  - BLADDER DISORDER [None]
  - CHILLS [None]
  - CONFUSIONAL STATE [None]
  - BLOOD PRESSURE INCREASED [None]
  - DYSPNOEA [None]
  - NASAL CONGESTION [None]
  - HYPOAESTHESIA [None]
  - HEADACHE [None]
